FAERS Safety Report 4880849-1 (Version None)
Quarter: 2005Q4

REPORT INFORMATION
  Report Type: 
  Country: None (occurrence: None)
  Receive Date: 20051223
  Receipt Date: 20051108
  Transmission Date: 20060501
  Serious: No
  Sender: FDA-Public Use
  Company Number: 05P-163-0315886-00

PATIENT
  Age: 69 Year
  Sex: Male
  Weight: 95 kg

DRUGS (5)
  1. HUMIRA [Suspect]
     Indication: RHEUMATOID ARTHRITIS
     Dosage: 40 MG, 1 IN 2 WK, SUBCUTANEOUS
     Route: 058
     Dates: start: 20041101
  2. METHOTREXATE [Concomitant]
  3. CELECOXIB [Concomitant]
  4. TIZANIDINE HCL [Concomitant]
  5. PARACETAMOL [Concomitant]

REACTIONS (8)
  - CATARACT [None]
  - DRUG INEFFECTIVE [None]
  - JOINT RANGE OF MOTION DECREASED [None]
  - JOINT STIFFNESS [None]
  - MUSCLE SPASMS [None]
  - MYALGIA [None]
  - TENDON DISORDER [None]
  - VISUAL DISTURBANCE [None]
